FAERS Safety Report 6768503 (Version 4)
Quarter: 2013Q1

REPORT INFORMATION
  Report Type: Report from Study
  Country: US (occurrence: US)
  Receive Date: 20080924
  Receipt Date: 20130122
  Transmission Date: 20140127
  Serious: Yes (Other)
  Sender: FDA-Public Use
  Company Number: US-ROCHE-586400

PATIENT
  Age: 76 Year
  Sex: Male
  Weight: 79.4 kg

DRUGS (1)
  1. XELODA [Suspect]
     Indication: RENAL CANCER METASTATIC
     Route: 065

REACTIONS (2)
  - Pulmonary oedema [Not Recovered/Not Resolved]
  - Fatigue [Not Recovered/Not Resolved]
